FAERS Safety Report 21859748 (Version 4)
Quarter: 2023Q1

REPORT INFORMATION
  Report Type: Report from Study
  Country: CN (occurrence: CN)
  Receive Date: 20230113
  Receipt Date: 20230328
  Transmission Date: 20230418
  Serious: Yes (Hospitalization)
  Sender: FDA-Public Use
  Company Number: CN-PFIZER INC-PV202300003323

PATIENT
  Age: 60 Year
  Sex: Male
  Weight: 67 kg

DRUGS (1)
  1. XALKORI [Suspect]
     Active Substance: CRIZOTINIB
     Indication: Lung adenocarcinoma stage IV
     Dosage: 250 MG, BID
     Route: 048
     Dates: start: 20221017, end: 20221230

REACTIONS (2)
  - Arteriosclerosis coronary artery [Recovering/Resolving]
  - Hyperhomocysteinaemia [Unknown]

NARRATIVE: CASE EVENT DATE: 20221222
